FAERS Safety Report 11982077 (Version 1)
Quarter: 2016Q1

REPORT INFORMATION
  Report Type: Spontaneous
  Country: US (occurrence: US)
  Receive Date: 20160201
  Receipt Date: 20160201
  Transmission Date: 20160526
  Serious: Yes (Death)
  Sender: FDA-Public Use
  Company Number: US-CIPLA LTD.-2016US00635

PATIENT

DRUGS (1)
  1. VALACYCLOVIR HYDROCHLORIDE. [Suspect]
     Active Substance: VALACYCLOVIR HYDROCHLORIDE
     Indication: HERPES SIMPLEX ENCEPHALITIS
     Dosage: 2 G, DAILY, ORALLY (ADMINISTERED AS FOUR 500-MG TABLETS 3 TIMES DAILY)
     Route: 048

REACTIONS (1)
  - Pneumonia [Fatal]
